FAERS Safety Report 5456739-2 (Version None)
Quarter: 2007Q3

REPORT INFORMATION
  Report Type: 
  Country: None (occurrence: None)
  Receive Date: 20070918
  Receipt Date: 20061121
  Transmission Date: 20080115
  Serious: Yes (Hospitalization)
  Sender: FDA-Public Use
  Company Number: US-ASTRAZENECA-2006UW25849

PATIENT
  Sex: Female

DRUGS (4)
  1. SEROQUEL [Suspect]
     Route: 048
     Dates: start: 20061116, end: 20061116
  2. SEROQUEL [Suspect]
     Route: 048
     Dates: start: 20061117, end: 20061117
  3. SEROQUEL [Suspect]
     Route: 048
     Dates: start: 20061118, end: 20061118
  4. SEROQUEL [Suspect]
     Route: 048
     Dates: start: 20061101

REACTIONS (1)
  - DYSTONIA [None]
